FAERS Safety Report 4289382-1 (Version None)
Quarter: 2004Q1

REPORT INFORMATION
  Report Type: 
  Country: None (occurrence: None)
  Receive Date: 20040204
  Receipt Date: 20030821
  Transmission Date: 20041129
  Serious: Yes (Life-Threatening)
  Sender: FDA-Public Use
  Company Number: 03H-163-0230545-00

PATIENT
  Age: 55 Year
  Sex: Male

DRUGS (2)
  1. ABBOKINASE [Suspect]
     Indication: VASCULAR GRAFT OCCLUSION
     Dosage: 120,000 UNITS/HR, CONTINUOUS INFUSION, INTRA-ARTERIAL
     Route: 013
     Dates: start: 20030820, end: 20030821
  2. HEPARIN [Concomitant]

REACTIONS (1)
  - HAEMORRHAGE INTRACRANIAL [None]
